FAERS Safety Report 4961519-8 (Version None)
Quarter: 2006Q1

REPORT INFORMATION
  Report Type: 
  Country: None (occurrence: None)
  Receive Date: 20060329
  Receipt Date: 20060320
  Transmission Date: 20060701
  Serious: Yes (Life-Threatening, Hospitalization)
  Sender: FDA-Public Use
  Company Number: 2006000265

PATIENT
  Age: 45 Year
  Sex: Female
  Weight: 108 kg

DRUGS (8)
  1. FRAGMIN [Suspect]
     Indication: THROMBOSIS PROPHYLAXIS
     Dosage: 6000 I.U. (3000 I.U., TWICE DAILY), SUBCUTANEOUS
     Route: 058
     Dates: start: 20041207, end: 20041210
  2. HEPARIN SODIUM [Suspect]
     Indication: PERIPHERAL EMBOLISM
     Dosage: 15000 I.U., INTRAVENOUS
     Route: 042
     Dates: start: 20041213, end: 20041221
  3. UROKINASE (UROKINASE) [Concomitant]
  4. CEFAMEZIN ^PHARMACIA-UPJOHN^ (CEFAZOLIN SODIUM, LIDOCAINE HYDROCHLORID [Concomitant]
  5. ALBUMINAR [Concomitant]
  6. SOLITA-T3 INJECTION (POTASSIUM CHLORIDE, SODIUM CHLORIDE, SODIUM LACTA [Concomitant]
  7. VEEN-F (CALCIUM CHLORIDE ANHYDROUS, MAGNESIUM CHLORIDE ANHYDROUS, POTA [Concomitant]
  8. AMINOFLUID (AMINO ACIDS NOS, ELECTROLYTES NOS, GLUCOSE) [Concomitant]

REACTIONS (6)
  - HEPARIN-INDUCED THROMBOCYTOPENIA [None]
  - ILEUS [None]
  - PERIPHERAL COLDNESS [None]
  - PERIPHERAL EMBOLISM [None]
  - PULMONARY ARTERY THROMBOSIS [None]
  - RESPIRATORY FAILURE [None]
